FAERS Safety Report 4836970-7 (Version None)
Quarter: 2005Q4

REPORT INFORMATION
  Report Type: 
  Country: None (occurrence: None)
  Receive Date: 20051121
  Receipt Date: 20051109
  Transmission Date: 20060501
  Serious: Yes (Hospitalization)
  Sender: FDA-Public Use
  Company Number: 2005BH002912

PATIENT
  Age: 63 Year
  Sex: Female
  Weight: 42.5 kg

DRUGS (9)
  1. EXTRANEAL [Suspect]
     Indication: RENAL FAILURE CHRONIC
     Dosage: 1500 ML; EVERY DAY; IP
     Route: 033
     Dates: start: 20040512, end: 20041111
  2. DIANEAL [Concomitant]
  3. ADALAT [Concomitant]
  4. GASPORT [Concomitant]
  5. LIPITOR [Concomitant]
  6. CALTAN [Concomitant]
  7. SEVEN EP [Concomitant]
  8. AMIYU [Concomitant]
  9. ESPO [Concomitant]

REACTIONS (4)
  - BLOOD PRESSURE INCREASED [None]
  - CARDIOMEGALY [None]
  - HAEMODIALYSIS [None]
  - WEIGHT INCREASED [None]
